FAERS Safety Report 4667520-6 (Version None)
Quarter: 2005Q2

REPORT INFORMATION
  Report Type: 
  Country: None (occurrence: None)
  Receive Date: 20050519
  Receipt Date: 20050519
  Transmission Date: 20051028
  Serious: Yes (Other)
  Sender: FDA-Public Use
  Company Number: None

PATIENT
  Age: 61 Year
  Sex: Male
  Weight: 69.4003 kg

DRUGS (1)
  1. LAMISIL [Suspect]
     Indication: ONYCHOMYCOSIS
     Dosage: 1   DAY    ORAL
     Route: 048

REACTIONS (4)
  - DYSGEUSIA [None]
  - HUNGER [None]
  - NAUSEA [None]
  - WEIGHT DECREASED [None]
